FAERS Safety Report 25808473 (Version 2)
Quarter: 2025Q3

REPORT INFORMATION
  Report Type: Spontaneous
  Country: AR (occurrence: AR)
  Receive Date: 20250916
  Receipt Date: 20250924
  Transmission Date: 20251021
  Serious: Yes (Other)
  Sender: PFIZER
  Company Number: AR-PFIZER INC-202500180993

PATIENT
  Age: 51 Year
  Sex: Male
  Weight: 87 kg

DRUGS (1)
  1. BRAFTOVI [Suspect]
     Active Substance: ENCORAFENIB
     Dosage: 4 DF, DAILY
     Dates: start: 20250801

REACTIONS (7)
  - Deep vein thrombosis [Recovering/Resolving]
  - Oral pain [Recovering/Resolving]
  - Decreased appetite [Recovering/Resolving]
  - Abdominal pain [Recovered/Resolved]
  - Muscle spasms [Recovering/Resolving]
  - Genital pain [Not Recovered/Not Resolved]
  - Skin discolouration [Not Recovered/Not Resolved]

NARRATIVE: CASE EVENT DATE: 20250801
